FAERS Safety Report 6392071-0 (Version None)
Quarter: 2009Q4

REPORT INFORMATION
  Report Type: 
  Country: None (occurrence: None)
  Receive Date: 20091007
  Receipt Date: 20090903
  Transmission Date: 20100525
  Serious: No
  Sender: FDA-Public Use
  Company Number: US-BAYER-200914229BCC

PATIENT
  Age: 78 Year
  Sex: Female
  Weight: 83 kg

DRUGS (5)
  1. ALEVE (CAPLET) [Suspect]
     Indication: PAIN IN EXTREMITY
     Dosage: TOTAL DAILY DOSE: 220 MG  UNIT DOSE: 220 MG
     Route: 048
     Dates: start: 20090902
  2. TETANUS SHOT [Concomitant]
     Indication: TETANUS IMMUNISATION
     Route: 065
  3. ACIPHEX [Concomitant]
  4. VERAPAMIL [Concomitant]
  5. SIMVASTATIN [Concomitant]

REACTIONS (1)
  - HYPOAESTHESIA FACIAL [None]
